FAERS Safety Report 5254592-3 (Version None)
Quarter: 2007Q1

REPORT INFORMATION
  Report Type: 
  Country: None (occurrence: None)
  Receive Date: 20070302
  Receipt Date: 20070220
  Transmission Date: 20070707
  Serious: Yes (Hospitalization)
  Sender: FDA-Public Use
  Company Number: FR-PFIZER INC-2007013904

PATIENT
  Age: 71 Year
  Sex: Female

DRUGS (1)
  1. DALACINE [Suspect]
     Indication: INFECTION

REACTIONS (7)
  - DIARRHOEA [None]
  - HYPERGLYCAEMIA [None]
  - OESOPHAGEAL DISCOMFORT [None]
  - PLATELET COUNT INCREASED [None]
  - RASH [None]
  - VOMITING [None]
  - WRONG TECHNIQUE IN DRUG USAGE PROCESS [None]
